FAERS Safety Report 4331548-6 (Version None)
Quarter: 2004Q2

REPORT INFORMATION
  Report Type: 
  Country: None (occurrence: None)
  Receive Date: 20040402
  Receipt Date: 20040325
  Transmission Date: 20050107
  Serious: Yes (Life-Threatening, Hospitalization, Disabling)
  Sender: FDA-Public Use
  Company Number: US-MERCK-0403USA02391

PATIENT
  Age: 52 Year
  Sex: Male

DRUGS (9)
  1. BACLOFEN [Concomitant]
     Route: 065
  2. OS-CAL [Concomitant]
     Route: 065
  3. AVONEX [Concomitant]
     Route: 051
  4. PROVIGIL [Concomitant]
     Route: 065
  5. DITROPAN [Concomitant]
     Route: 065
  6. ZOCOR [Suspect]
     Indication: MULTIPLE SCLEROSIS
     Route: 048
     Dates: start: 20031001, end: 20030101
  7. ZOCOR [Suspect]
     Route: 048
     Dates: start: 20030101, end: 20040306
  8. IMITREX [Concomitant]
     Route: 065
  9. ZANAFLEX [Concomitant]
     Route: 065

REACTIONS (5)
  - ESCHERICHIA URINARY TRACT INFECTION [None]
  - LOSS OF CONSCIOUSNESS [None]
  - MEDICATION ERROR [None]
  - RHABDOMYOLYSIS [None]
  - UROSEPSIS [None]
